FAERS Safety Report 9837506 (Version 1)
Quarter: 2014Q1

REPORT INFORMATION
  Report Type: Spontaneous
  Country: US (occurrence: US)
  Receive Date: 20140123
  Receipt Date: 20140123
  Transmission Date: 20141002
  Serious: No
  Sender: FDA-Public Use
  Company Number: US-009507513-1401USA008030

PATIENT
  Sex: Male

DRUGS (1)
  1. ZIOPTAN [Suspect]
     Dosage: UNK
     Dates: start: 201308

REACTIONS (2)
  - Wheezing [Not Recovered/Not Resolved]
  - Cough [Not Recovered/Not Resolved]
